FAERS Safety Report 8941677 (Version 1)
Quarter: 2012Q4

REPORT INFORMATION
  Report Type: 
  Country: US (occurrence: US)
  Receive Date: 20121203
  Receipt Date: 20121203
  Transmission Date: 20130627
  Serious: No
  Sender: FDA-Public Use
  Company Number: US-PFIZER INC-2012299136

PATIENT
  Sex: Female

DRUGS (1)
  1. TORISEL [Suspect]
     Dosage: UNK, 2 ml of the infusion

REACTIONS (3)
  - Drug intolerance [Unknown]
  - Chest discomfort [Unknown]
  - Flushing [Unknown]
